FAERS Safety Report 12239962 (Version 2)
Quarter: 2016Q2

REPORT INFORMATION
  Report Type: Spontaneous
  Country: US (occurrence: US)
  Receive Date: 20160405
  Receipt Date: 20160419
  Transmission Date: 20160815
  Serious: Yes (Hospitalization, Other)
  Sender: FDA-Public Use
  Company Number: US-TEVA-648257USA

PATIENT
  Age: 66 Year
  Sex: Male

DRUGS (2)
  1. SOTALOL. [Suspect]
     Active Substance: SOTALOL
     Indication: HEART RATE ABNORMAL
  2. SOTALOL. [Suspect]
     Active Substance: SOTALOL
     Indication: CARDIAC DISORDER
     Route: 065
     Dates: start: 201507, end: 201508

REACTIONS (10)
  - Syncope [Unknown]
  - Electrolyte imbalance [Recovering/Resolving]
  - Blood calcium decreased [Recovering/Resolving]
  - Heart rate increased [Unknown]
  - Dehydration [Unknown]
  - Blood magnesium decreased [Recovering/Resolving]
  - Blood sodium decreased [Recovering/Resolving]
  - Cardiac disorder [Unknown]
  - Blood potassium decreased [Recovering/Resolving]
  - Diarrhoea [Recovering/Resolving]

NARRATIVE: CASE EVENT DATE: 20150715
